FAERS Safety Report 24955415 (Version 1)
Quarter: 2025Q1

REPORT INFORMATION
  Report Type: Spontaneous
  Country: CN (occurrence: CN)
  Receive Date: 20250211
  Receipt Date: 20250211
  Transmission Date: 20250409
  Serious: Yes (Hospitalization, Disabling)
  Sender: AMGEN
  Company Number: CN-AMGEN-CHNSP2025025941

PATIENT
  Age: 10 Year
  Sex: Male

DRUGS (6)
  1. BLINCYTO [Suspect]
     Active Substance: BLINATUMOMAB
     Indication: Epilepsy
     Route: 040
     Dates: start: 20241220, end: 20241222
  2. BLINCYTO [Suspect]
     Active Substance: BLINATUMOMAB
     Indication: Neoplasm malignant
  3. BLINCYTO [Suspect]
     Active Substance: BLINATUMOMAB
     Indication: Acute lymphocytic leukaemia
  4. BLINCYTO [Suspect]
     Active Substance: BLINATUMOMAB
     Indication: Cerebral infarction
  5. BLINCYTO [Suspect]
     Active Substance: BLINATUMOMAB
     Indication: Mucosal ulceration
  6. BLINCYTO [Suspect]
     Active Substance: BLINATUMOMAB
     Indication: Soft tissue infection

REACTIONS (2)
  - Epilepsy [Recovering/Resolving]
  - Cerebral infarction [Recovering/Resolving]

NARRATIVE: CASE EVENT DATE: 20241222
